FAERS Safety Report 4309114-8 (Version None)
Quarter: 2004Q1

REPORT INFORMATION
  Report Type: 
  Country: None (occurrence: None)
  Receive Date: 20040227
  Receipt Date: 20040217
  Transmission Date: 20041129
  Serious: Yes (Life-Threatening, Hospitalization)
  Sender: FDA-Public Use
  Company Number: MEDI-0001496

PATIENT
  Age: 1 Month
  Sex: Female

DRUGS (2)
  1. SYNAGIS [Suspect]
     Indication: ANTIVIRAL PROPHYLAXIS
     Dosage: 1 IN 30 D, INTRA-MUSCULAR
     Route: 030
     Dates: start: 20030108, end: 20040108
  2. SYNAGIS [Suspect]
     Indication: ANTIVIRAL PROPHYLAXIS
     Dosage: 1 IN 30 D, INTRA-MUSCULAR
     Route: 030
     Dates: start: 20040206, end: 20040206

REACTIONS (2)
  - CREPITATIONS [None]
  - NEONATAL APNOEIC ATTACK [None]
